FAERS Safety Report 6502260-X (Version None)
Quarter: 2009Q4

REPORT INFORMATION
  Report Type: 
  Country: None (occurrence: None)
  Receive Date: 20091216
  Receipt Date: 20091110
  Transmission Date: 20100525
  Serious: No
  Sender: FDA-Public Use
  Company Number: US-ABBOTT-09P-163-0608580-00

PATIENT
  Age: 56 Year
  Sex: Female

DRUGS (3)
  1. TRILIPIX [Suspect]
     Indication: BLOOD TRIGLYCERIDES INCREASED
     Route: 048
  2. TRICOR [Concomitant]
     Indication: BLOOD TRIGLYCERIDES INCREASED
     Route: 048
     Dates: end: 20090101
  3. TRICOR [Concomitant]
     Dosage: UNKNOWN DOSE
     Route: 048

REACTIONS (2)
  - DIARRHOEA [None]
  - DYSPEPSIA [None]
